FAERS Safety Report 5190657-2 (Version None)
Quarter: 2006Q4

REPORT INFORMATION
  Report Type: 
  Country: None (occurrence: None)
  Receive Date: 20061222
  Receipt Date: 20061101
  Transmission Date: 20070319
  Serious: Yes (Other)
  Sender: FDA-Public Use
  Company Number: US-BRISTOL-MYERS SQUIBB COMPANY-13563226

PATIENT
  Age: 76 Year
  Sex: Female
  Weight: 82 kg

DRUGS (8)
  1. ORENCIA [Suspect]
     Indication: RHEUMATOID ARTHRITIS
     Route: 042
  2. COZAAR [Concomitant]
  3. ATENOLOL [Concomitant]
  4. NORVASC [Concomitant]
  5. PREDNISONE TAB [Concomitant]
  6. PROZAC [Concomitant]
  7. FOLIC ACID [Concomitant]
  8. VITAMINS [Concomitant]

REACTIONS (3)
  - EYE SWELLING [None]
  - HYPERTENSION [None]
  - OCULAR HYPERAEMIA [None]
